FAERS Safety Report 7540015-8 (Version None)
Quarter: 2011Q2

REPORT INFORMATION
  Report Type: 
  Country: None (occurrence: None)
  Receive Date: 20110610
  Receipt Date: 20110607
  Transmission Date: 20111010
  Serious: No
  Sender: FDA-Public Use
  Company Number: US-TEVA-285222USA

PATIENT
  Sex: Female
  Weight: 86.26 kg

DRUGS (4)
  1. LEVOTHYROXINE SODIUM [Concomitant]
     Indication: HYPOTHYROIDISM
  2. LISINOPRIL [Concomitant]
     Indication: HYPERTENSION
  3. PLAN B ONE-STEP [Suspect]
     Indication: POST COITAL CONTRACEPTION
     Dosage: 1.5 MILLIGRAM;
     Route: 048
     Dates: start: 20110607, end: 20110607
  4. AMLODIPINE [Concomitant]
     Indication: HYPERTENSION

REACTIONS (1)
  - VOMITING [None]
